FAERS Safety Report 4763803-X (Version None)
Quarter: 2005Q3

REPORT INFORMATION
  Report Type: 
  Country: None (occurrence: None)
  Receive Date: 20050901
  Receipt Date: 20050126
  Transmission Date: 20060218
  Serious: Yes (Other)
  Sender: FDA-Public Use
  Company Number: 16353

PATIENT
  Age: 64 Year
  Sex: Male
  Weight: 90.7194 kg

DRUGS (3)
  1. PACLITAXEL [Suspect]
     Dosage: 355 MG IV Q3WKS
     Dates: start: 20050106
  2. PACLITAXEL [Suspect]
     Dosage: 355 MG IV Q3WKS
     Dates: start: 20050126
  3. CARBOPLATIN [Concomitant]

REACTIONS (1)
  - EXTRAVASATION [None]
